FAERS Safety Report 8362587-6 (Version None)
Quarter: 2012Q2

REPORT INFORMATION
  Report Type: 
  Country: None (occurrence: None)
  Receive Date: 20120516
  Receipt Date: 20120510
  Transmission Date: 20120825
  Serious: Yes (Death)
  Sender: FDA-Public Use
  Company Number: US-PFIZER INC-2012106765

PATIENT
  Sex: Male

DRUGS (1)
  1. TORISEL [Suspect]
     Indication: BONE NEOPLASM MALIGNANT
     Dosage: UNK

REACTIONS (2)
  - DISEASE PROGRESSION [None]
  - BONE NEOPLASM MALIGNANT [None]
